FAERS Safety Report 5056893-0 (Version None)
Quarter: 2006Q3

REPORT INFORMATION
  Report Type: 
  Country: None (occurrence: None)
  Receive Date: 20060721
  Receipt Date: 20060327
  Transmission Date: 20061208
  Serious: Yes (Hospitalization)
  Sender: FDA-Public Use
  Company Number: HQWYE554028MAR06

PATIENT
  Sex: Male
  Weight: 61 kg

DRUGS (7)
  1. ENBREL [Suspect]
     Indication: RHEUMATOID ARTHRITIS
     Route: 058
     Dates: start: 20060127, end: 20060330
  2. BISOLVON [Concomitant]
     Route: 048
     Dates: end: 20060324
  3. MUCOSTA [Concomitant]
     Indication: GASTRITIS
     Route: 048
     Dates: end: 20060324
  4. RESPLEN [Concomitant]
     Route: 048
     Dates: end: 20060329
  5. CRAVIT [Concomitant]
     Indication: INFECTION
     Route: 048
     Dates: end: 20060305
  6. ZANTAC [Concomitant]
     Indication: PROPHYLAXIS AGAINST GASTROINTESTINAL ULCER
     Route: 048
     Dates: end: 20060330
  7. MOBIC [Concomitant]
     Indication: RHEUMATOID ARTHRITIS
     Route: 048
     Dates: end: 20060310

REACTIONS (11)
  - ALBUMIN URINE PRESENT [None]
  - ANTINEUTROPHIL CYTOPLASMIC ANTIBODY POSITIVE [None]
  - BLOOD CHLORIDE DECREASED [None]
  - BLOOD SODIUM DECREASED [None]
  - GLOMERULONEPHRITIS PROLIFERATIVE [None]
  - HAEMATOCRIT DECREASED [None]
  - HAEMOGLOBIN DECREASED [None]
  - MICROSCOPIC POLYANGIITIS [None]
  - NEPHRITIS [None]
  - PLATELET COUNT INCREASED [None]
  - RED BLOOD CELL COUNT DECREASED [None]
